FAERS Safety Report 24180101 (Version 1)
Quarter: 2024Q3

REPORT INFORMATION
  Report Type: Report from Study
  Country: US (occurrence: US)
  Receive Date: 20240806
  Receipt Date: 20240806
  Transmission Date: 20241017
  Serious: No
  Sender: ROCHE
  Company Number: US-ROCHE-10000046967

PATIENT
  Age: 53 Year
  Sex: Male

DRUGS (8)
  1. OCREVUS [Suspect]
     Active Substance: OCRELIZUMAB
     Indication: Relapsing multiple sclerosis
     Route: 065
  2. VALIUM [Suspect]
     Active Substance: DIAZEPAM
     Indication: Product used for unknown indication
     Route: 048
  3. CITALOPRAM [Concomitant]
     Active Substance: CITALOPRAM\CITALOPRAM HYDROBROMIDE
  4. ADDERALL XR [Concomitant]
     Active Substance: AMPHETAMINE ASPARTATE\AMPHETAMINE SULFATE\DEXTROAMPHETAMINE SACCHARATE\DEXTROAMPHETAMINE SULFATE
  5. VENLAFAXINE [Concomitant]
     Active Substance: VENLAFAXINE HYDROCHLORIDE
  6. ZOLPIDEM [Concomitant]
     Active Substance: ZOLPIDEM TARTRATE
     Route: 048
  7. PREDNISONE [Concomitant]
     Active Substance: PREDNISONE
  8. CIPROFLOXACIN [Concomitant]
     Active Substance: CIPROFLOXACIN

REACTIONS (26)
  - Pain [Unknown]
  - Fatigue [Unknown]
  - Headache [Unknown]
  - Muscle spasticity [Unknown]
  - Tremor [Unknown]
  - Visual impairment [Unknown]
  - Skin burning sensation [Unknown]
  - Dizziness [Unknown]
  - Tinnitus [Unknown]
  - Pain in extremity [Unknown]
  - Tenderness [Unknown]
  - Contusion [Unknown]
  - Hypersensitivity [Unknown]
  - Anxiety [Unknown]
  - Lethargy [Unknown]
  - Muscle twitching [Unknown]
  - Disturbance in attention [Unknown]
  - Vision blurred [Unknown]
  - Multiple sclerosis [Unknown]
  - Atrophy [Unknown]
  - Dysarthria [Unknown]
  - JC polyomavirus test positive [Unknown]
  - Myalgia [Unknown]
  - Parosmia [Unknown]
  - Photophobia [Unknown]
  - Urinary incontinence [Unknown]
